FAERS Safety Report 6880852-6 (Version None)
Quarter: 2010Q3

REPORT INFORMATION
  Report Type: 
  Country: None (occurrence: None)
  Receive Date: 20100728
  Receipt Date: 20100718
  Transmission Date: 20110219
  Serious: Yes (Hospitalization)
  Sender: FDA-Public Use
  Company Number: FR-BAXTER-2010BH019972

PATIENT
  Age: 66 Year
  Sex: Male

DRUGS (1)
  1. TISSEEL VH KIT [Suspect]
     Indication: PRODUCT USED FOR UNKNOWN INDICATION
     Route: 061
     Dates: start: 20091126, end: 20091126

REACTIONS (2)
  - INTRACRANIAL HYPOTENSION [None]
  - STAPHYLOCOCCAL INFECTION [None]
